FAERS Safety Report 13163282 (Version 2)
Quarter: 2017Q1

REPORT INFORMATION
  Report Type: Report from Study
  Country: UA (occurrence: UA)
  Receive Date: 20170130
  Receipt Date: 20170206
  Transmission Date: 20170428
  Serious: Yes (Other)
  Sender: FDA-Public Use
  Company Number: UA-TEVA-733445ISR

PATIENT
  Age: 10 Year
  Sex: Female
  Weight: 44 kg

DRUGS (13)
  1. LONQUEX [Suspect]
     Active Substance: LIPEGFILGRASTIM
     Dosage: 0 MILLIGRAM DAILY;
  2. ONDANSETRONUM [Concomitant]
     Active Substance: ONDANSETRON
     Route: 042
     Dates: start: 20170116, end: 20170120
  3. POTASSIUM-MAGNESIUM-ASPARAGINAT [Concomitant]
     Indication: MINERAL SUPPLEMENTATION
     Dosage: 50 ML DAILY;
     Route: 042
     Dates: start: 20161223, end: 20161227
  4. GLUCOSA 5% [Concomitant]
     Indication: FLUID REPLACEMENT
     Dosage: 2000 ML DAILY;
     Route: 042
     Dates: start: 20161223, end: 20161227
  5. NEUPOGEN [Suspect]
     Active Substance: FILGRASTIM
     Indication: EMBRYONAL RHABDOMYOSARCOMA
     Dosage: 220 MICROGRAM DAILY;
     Route: 058
     Dates: start: 20161225, end: 20170101
  6. ACTINOMYCIN D [Suspect]
     Active Substance: DACTINOMYCIN
     Indication: EMBRYONAL RHABDOMYOSARCOMA
     Dosage: 2 MILLIGRAM DAILY;
     Route: 042
     Dates: start: 20170116, end: 20170116
  7. GLUCOSA 5% [Concomitant]
     Dosage: 2000 ML DAILY;
     Route: 042
     Dates: start: 20170116, end: 20170120
  8. IFOSFAMIDE. [Suspect]
     Active Substance: IFOSFAMIDE
     Indication: EMBRYONAL RHABDOMYOSARCOMA
     Dosage: 4000 MILLIGRAM DAILY;
     Route: 042
     Dates: start: 20170116, end: 20170117
  9. VINCRISTINE [Suspect]
     Active Substance: VINCRISTINE
     Dosage: 2 MILLIGRAM DAILY;
     Route: 042
     Dates: start: 20170123, end: 20170123
  10. POTASSIUM-MAGNESIUM-ASPARAGINAT [Concomitant]
     Dosage: 50 ML DAILY;
     Route: 042
     Dates: start: 20170116, end: 20170120
  11. LORATADINE. [Concomitant]
     Active Substance: LORATADINE
     Indication: ALLERGY PROPHYLAXIS
     Dosage: 10 MILLIGRAM DAILY;
     Route: 048
     Dates: start: 20161228, end: 20170101
  12. VINCRISTINE [Suspect]
     Active Substance: VINCRISTINE
     Indication: EMBRYONAL RHABDOMYOSARCOMA
     Dosage: 2 MILLIGRAM DAILY;
     Route: 042
     Dates: start: 20170116, end: 20170116
  13. ONDANSETRONUM [Concomitant]
     Active Substance: ONDANSETRON
     Indication: PROPHYLAXIS OF NAUSEA AND VOMITING
     Route: 042
     Dates: start: 20161223, end: 20161227

REACTIONS (1)
  - Lymphopenia [Recovered/Resolved]

NARRATIVE: CASE EVENT DATE: 20170122
